FAERS Safety Report 21040951 (Version 1)
Quarter: 2022Q3

REPORT INFORMATION
  Report Type: Report from Study
  Country: DE (occurrence: DE)
  Receive Date: 20220704
  Receipt Date: 20220704
  Transmission Date: 20221026
  Serious: Yes (Death, Hospitalization)
  Sender: FDA-Public Use
  Company Number: DE-ABBVIE-22K-062-4450801-00

PATIENT
  Age: 72 Year
  Sex: Male

DRUGS (2)
  1. CARBIDOPA\LEVODOPA [Suspect]
     Active Substance: CARBIDOPA\LEVODOPA
     Indication: Parkinson^s disease
     Dosage: MD: 8.0ML; CRD: 2.6ML/H; ED: 1.0ML, STRENGTH - 20MG/ML, 5MG/ML
     Route: 050
     Dates: start: 20211126
  2. CARBIDOPA\LEVODOPA [Suspect]
     Active Substance: CARBIDOPA\LEVODOPA

REACTIONS (7)
  - Pneumonia aspiration [Fatal]
  - Hospitalisation [Recovered/Resolved]
  - Palliative care [Not Recovered/Not Resolved]
  - Feeding disorder [Not Recovered/Not Resolved]
  - Malaise [Not Recovered/Not Resolved]
  - Dysphagia [Not Recovered/Not Resolved]
  - Pneumonia [Recovered/Resolved]

NARRATIVE: CASE EVENT DATE: 20220601
